FAERS Safety Report 14408214 (Version 1)
Quarter: 2018Q1

REPORT INFORMATION
  Report Type: Spontaneous
  Country: US (occurrence: US)
  Receive Date: 20180118
  Receipt Date: 20180118
  Transmission Date: 20180509
  Serious: No
  Sender: FDA-Public Use
  Company Number: US-INTERCEPT-PMOCA2017000816

PATIENT

DRUGS (14)
  1. OCALIVA [Suspect]
     Active Substance: OBETICHOLIC ACID
     Indication: PRIMARY BILIARY CHOLANGITIS
     Dosage: 10 MG, QD
     Route: 048
     Dates: start: 20170705
  2. CEPHAL [Concomitant]
  3. OMEPRAMED [Concomitant]
  4. HYDROCHLOROTHIAZIDE. [Concomitant]
     Active Substance: HYDROCHLOROTHIAZIDE
  5. ATORVASTATIN [Concomitant]
     Active Substance: ATORVASTATIN
  6. VITAMIN C [Concomitant]
     Active Substance: ASCORBIC ACID
  7. MULTI VITAMIN [Concomitant]
     Active Substance: VITAMINS
  8. CALCIUM + MAGNESIUM [Concomitant]
  9. URSODIOL. [Concomitant]
     Active Substance: URSODIOL
  10. GABAPEN [Concomitant]
     Active Substance: GABAPENTIN
  11. LISINOPRIL. [Concomitant]
     Active Substance: LISINOPRIL
  12. VITAMIN D3 [Concomitant]
     Active Substance: CHOLECALCIFEROL
  13. LEVOTHYROX [Concomitant]
     Active Substance: LEVOTHYROXINE
  14. ACYCLOVIR. [Concomitant]
     Active Substance: ACYCLOVIR

REACTIONS (7)
  - Nausea [Unknown]
  - Oropharyngeal pain [Unknown]
  - Fatigue [Unknown]
  - Pruritus [Unknown]
  - Dry skin [Unknown]
  - Influenza [Unknown]
  - Diarrhoea [Unknown]

NARRATIVE: CASE EVENT DATE: 201708
